FAERS Safety Report 12320989 (Version 1)
Quarter: 2016Q2

REPORT INFORMATION
  Report Type: Spontaneous
  Country: IT (occurrence: IT)
  Receive Date: 20160502
  Receipt Date: 20160502
  Transmission Date: 20160815
  Serious: Yes (Other)
  Sender: FDA-Public Use
  Company Number: IT-ASTRAZENECA-2016SE46200

PATIENT
  Age: 32 Year
  Sex: Female

DRUGS (4)
  1. SEROQUEL [Suspect]
     Active Substance: QUETIAPINE FUMARATE
     Route: 048
     Dates: start: 20160330, end: 20160330
  2. HALDOL [Suspect]
     Active Substance: HALOPERIDOL
     Dosage: 2 MG/ML, TOTAL
     Route: 048
     Dates: start: 20160330, end: 20160330
  3. SERENASE [Suspect]
     Active Substance: HALOPERIDOL
     Dosage: 2 MG/ML
     Route: 048
     Dates: start: 20160330, end: 20160330
  4. SEROQUEL [Suspect]
     Active Substance: QUETIAPINE FUMARATE
     Route: 048
     Dates: start: 20160330, end: 20160330

REACTIONS (2)
  - Intentional self-injury [Unknown]
  - Intentional product misuse [Unknown]

NARRATIVE: CASE EVENT DATE: 20160330
